FAERS Safety Report 4680429-7 (Version None)
Quarter: 2005Q2

REPORT INFORMATION
  Report Type: 
  Country: None (occurrence: None)
  Receive Date: 20050601
  Receipt Date: 20050512
  Transmission Date: 20051028
  Serious: Yes (Death, Hospitalization)
  Sender: FDA-Public Use
  Company Number: EWC050544058

PATIENT
  Age: 72 Year
  Sex: Male

DRUGS (8)
  1. ALIMTA [Suspect]
     Indication: LUNG CARCINOMA CELL TYPE UNSPECIFIED STAGE IV
     Dosage: 500 MG/1 OTHER
     Route: 050
     Dates: start: 20050118
  2. SELOKEN SLOW RELEASE PLUS [Concomitant]
  3. SIMVASTATIN HEXAL (SIMVASTATIN) [Concomitant]
  4. BETAPRED [Concomitant]
  5. BEHEPAN (CYANOCOBALAMIN) [Concomitant]
  6. MONOKET [Concomitant]
  7. VITAPLEX [Concomitant]
  8. THROMBYL (ACETYLSALICYLIC ACID) [Concomitant]

REACTIONS (8)
  - ATRIAL FIBRILLATION [None]
  - C-REACTIVE PROTEIN INCREASED [None]
  - CHILLS [None]
  - INFECTION [None]
  - MALAISE [None]
  - PYREXIA [None]
  - RESPIRATORY DISTRESS [None]
  - WHITE BLOOD CELL COUNT DECREASED [None]
